FAERS Safety Report 10036089 (Version 2)
Quarter: 2014Q1

REPORT INFORMATION
  Report Type: Spontaneous
  Country: BR (occurrence: BR)
  Receive Date: 20140325
  Receipt Date: 20140328
  Transmission Date: 20141002
  Serious: Yes (Other)
  Sender: FDA-Public Use
  Company Number: BR-PFIZER INC-2014083151

PATIENT
  Sex: Female

DRUGS (1)
  1. PRISTIQ [Suspect]
     Indication: DEPRESSION
     Dosage: UNK
     Route: 048
     Dates: start: 2009

REACTIONS (13)
  - Drug dependence [Unknown]
  - Loss of consciousness [Unknown]
  - Road traffic accident [Unknown]
  - Uterine leiomyoma [Unknown]
  - Increased appetite [Unknown]
  - Obesity [Unknown]
  - Hallucination, auditory [Unknown]
  - Tremor [Unknown]
  - Affect lability [Unknown]
  - Paraesthesia [Unknown]
  - Intentional drug misuse [Unknown]
  - Abnormal dreams [Unknown]
  - Feeling abnormal [Unknown]
